FAERS Safety Report 21165164 (Version 1)
Quarter: 2022Q3

REPORT INFORMATION
  Report Type: Spontaneous
  Country: US (occurrence: US)
  Receive Date: 20220803
  Receipt Date: 20220803
  Transmission Date: 20221027
  Serious: Yes (Other)
  Sender: FDA-Public Use
  Company Number: US-SA-SAC20220729001628

PATIENT
  Age: 37 Year
  Sex: Female

DRUGS (1)
  1. ZANTAC [Suspect]
     Active Substance: RANITIDINE HYDROCHLORIDE
     Indication: Dyspepsia
     Dosage: QD
     Route: 065
     Dates: start: 200505, end: 201701

REACTIONS (4)
  - Gastrointestinal carcinoma [Unknown]
  - Renal cancer [Unknown]
  - Ovarian cancer [Unknown]
  - Uterine cancer [Unknown]

NARRATIVE: CASE EVENT DATE: 20150301
